FAERS Safety Report 9262918 (Version 1)
Quarter: 2013Q2

REPORT INFORMATION
  Report Type: Not Available
  Country: FR (occurrence: FR)
  Receive Date: 20130430
  Receipt Date: 20130430
  Transmission Date: 20140414
  Serious: Yes (Death)
  Sender: FDA-Public Use
  Company Number: FR-ASTELLAS-2013EU003861

PATIENT
  Age: 82 Year
  Sex: Male

DRUGS (8)
  1. VESICARE [Suspect]
     Indication: DYSURIA
     Dosage: 1 DF, UID/QD
     Route: 048
     Dates: start: 20130323, end: 20130331
  2. DIAMICRON [Concomitant]
     Dosage: 1 DF, UID/QD
     Route: 065
  3. CANDESARTAN [Concomitant]
     Dosage: 16 MG, UNKNOWN/D
     Route: 065
  4. CLOPIDOGREL [Concomitant]
     Dosage: 75 MG, UNKNOWN/D
     Route: 065
  5. BISOPROLOL [Concomitant]
     Dosage: 1.25 MG, UNKNOWN/D
     Route: 065
  6. TAMSULOSIN [Concomitant]
     Dosage: 0.4 MG, UNKNOWN/D
     Route: 065
  7. FINASTERIDE [Concomitant]
     Dosage: 5 MG, UNKNOWN/D
     Route: 065
     Dates: end: 20130323
  8. ALPRAZOLAM [Concomitant]
     Dosage: 0.5 MG, UNKNOWN/D
     Route: 065

REACTIONS (1)
  - Death [Fatal]
